FAERS Safety Report 10044405 (Version 4)
Quarter: 2014Q2

REPORT INFORMATION
  Report Type: Report from Study
  Country: CA (occurrence: CA)
  Receive Date: 20140328
  Receipt Date: 20140502
  Transmission Date: 20141212
  Serious: Yes (Hospitalization, Other)
  Sender: FDA-Public Use
  Company Number: CA-JNJFOC-20140213520

PATIENT
  Age: 38 Year
  Sex: Female
  Weight: 59.88 kg

DRUGS (1)
  1. REMICADE [Suspect]
     Indication: COLITIS ULCERATIVE
     Dosage: 1ST INDUCTION INFUSION
     Route: 042
     Dates: start: 20140213, end: 2014

REACTIONS (8)
  - Muscular weakness [Unknown]
  - Pyrexia [Unknown]
  - Infection [Unknown]
  - Asthenia [Unknown]
  - Pain [Unknown]
  - General physical health deterioration [Unknown]
  - Intestinal operation [Unknown]
  - Surgery [Unknown]
